FAERS Safety Report 9760315 (Version 2)
Quarter: 2015Q3

REPORT INFORMATION
  Report Type: Spontaneous
  Country: US (occurrence: US)
  Receive Date: 20131216
  Receipt Date: 20150806
  Transmission Date: 20151125
  Serious: No
  Sender: FDA-Public Use
  Company Number: US-GILEAD-2010-0029236

PATIENT
  Age: 63 Year
  Sex: Female

DRUGS (14)
  1. LETAIRIS [Suspect]
     Active Substance: AMBRISENTAN
     Indication: PULMONARY ARTERIAL HYPERTENSION
     Route: 048
     Dates: start: 20100423, end: 20100430
  2. WARFARIN [Concomitant]
     Active Substance: WARFARIN
  3. ALLOPURINOL. [Concomitant]
     Active Substance: ALLOPURINOL
  4. SIMVASTATIN. [Concomitant]
     Active Substance: SIMVASTATIN
  5. REVATIO [Concomitant]
     Active Substance: SILDENAFIL CITRATE
  6. TRAMADOL. [Concomitant]
     Active Substance: TRAMADOL
  7. POTASSIUM [Concomitant]
     Active Substance: POTASSIUM
  8. METFORMIN [Concomitant]
     Active Substance: METFORMIN HYDROCHLORIDE
  9. MAGNESIUM OXIDE. [Concomitant]
     Active Substance: MAGNESIUM OXIDE
  10. ATENOLOL. [Concomitant]
     Active Substance: ATENOLOL
  11. DILTIAZEM [Concomitant]
     Active Substance: DILTIAZEM
  12. LISINOPRIL. [Concomitant]
     Active Substance: LISINOPRIL
  13. TORSEMIDE. [Concomitant]
     Active Substance: TORSEMIDE
  14. DIOVAN [Concomitant]
     Active Substance: VALSARTAN

REACTIONS (4)
  - Somnolence [Recovered/Resolved]
  - Hot flush [Recovered/Resolved]
  - Lethargy [Recovered/Resolved]
  - Erythema [Recovered/Resolved]

NARRATIVE: CASE EVENT DATE: 20100423
